FAERS Safety Report 9894916 (Version 2)
Quarter: 2014Q2

REPORT INFORMATION
  Report Type: Spontaneous
  Country: US (occurrence: US)
  Receive Date: 20140213
  Receipt Date: 20140508
  Transmission Date: 20141212
  Serious: No
  Sender: FDA-Public Use
  Company Number: US-SA-2014SA009744

PATIENT
  Age: 52 Year
  Sex: Male

DRUGS (1)
  1. KYNAMRO [Suspect]
     Indication: TYPE IIA HYPERLIPIDAEMIA
     Route: 065
     Dates: start: 20130926

REACTIONS (15)
  - Influenza like illness [Not Recovered/Not Resolved]
  - Pyrexia [Not Recovered/Not Resolved]
  - Chills [Not Recovered/Not Resolved]
  - Bone pain [Not Recovered/Not Resolved]
  - Vomiting [Not Recovered/Not Resolved]
  - Pyrexia [Unknown]
  - Vomiting [Unknown]
  - Bone pain [Unknown]
  - Medication error [Unknown]
  - Injection site erythema [Unknown]
  - Injection site pruritus [Unknown]
  - Medication error [Unknown]
  - Groin pain [Not Recovered/Not Resolved]
  - Renal pain [Not Recovered/Not Resolved]
  - Gastric disorder [Not Recovered/Not Resolved]
